FAERS Safety Report 20986716 (Version 5)
Quarter: 2022Q3

REPORT INFORMATION
  Report Type: Spontaneous
  Country: US (occurrence: US)
  Receive Date: 20220621
  Receipt Date: 20220902
  Transmission Date: 20221026
  Serious: No
  Sender: FDA-Public Use
  Company Number: US-UNITED THERAPEUTICS-UNT-2022-013079

PATIENT
  Age: 49 Year
  Sex: Female
  Weight: 86.168 kg

DRUGS (5)
  1. REMODULIN [Suspect]
     Active Substance: TREPROSTINIL
     Indication: Pulmonary arterial hypertension
     Dosage: UNK, CONTINUING
     Route: 058
     Dates: start: 20220606
  2. REMODULIN [Suspect]
     Active Substance: TREPROSTINIL
     Dosage: 0.014 ?G/KG (PREFILLED WITH 2.8ML/CASSETTE + 3 ML/CASSETTE AT PUMP RATE 31 MCL/HOUR)
     Route: 058
     Dates: start: 202206
  3. REMODULIN [Suspect]
     Active Substance: TREPROSTINIL
     Indication: Pulmonary arterial hypertension
     Dosage: UNK, CONTINUING
     Route: 058
     Dates: start: 2022
  4. REMODULIN [Suspect]
     Active Substance: TREPROSTINIL
     Dosage: 0.020 ?G/KG, CONTINUING (PREFILLED WITH 2.4 ML PER CASSETTE; AT A PUMP RATE OF 22 MCL/HR)
     Route: 058
     Dates: start: 2022
  5. OPSUMIT [Concomitant]
     Active Substance: MACITENTAN
     Indication: Product used for unknown indication
     Dosage: UNK
     Route: 065

REACTIONS (11)
  - Infusion site pain [Unknown]
  - Headache [Not Recovered/Not Resolved]
  - Pain in jaw [Recovered/Resolved]
  - Myalgia [Recovered/Resolved]
  - Device use error [Recovered/Resolved]
  - Device leakage [Recovered/Resolved]
  - Product odour abnormal [Unknown]
  - Pain in extremity [Not Recovered/Not Resolved]
  - Decreased appetite [Unknown]
  - Nausea [Unknown]
  - Device maintenance issue [Unknown]

NARRATIVE: CASE EVENT DATE: 20220601
